FAERS Safety Report 6731351-3 (Version None)
Quarter: 2010Q2

REPORT INFORMATION
  Report Type: 
  Country: None (occurrence: None)
  Receive Date: 20100517
  Receipt Date: 20100517
  Transmission Date: 20101027
  Serious: Yes (Hospitalization)
  Sender: FDA-Public Use
  Company Number: None

PATIENT
  Sex: Male
  Weight: 102.5129 kg

DRUGS (1)
  1. TRAMADOL HCL [Suspect]
     Indication: ARTHRALGIA
     Dosage: 50MG T1-2 TABS PO Q2H PO
     Route: 048
     Dates: start: 20081117, end: 20100514

REACTIONS (7)
  - CLONUS [None]
  - DRUG ABUSE [None]
  - HYPERTENSION [None]
  - INCORRECT DOSE ADMINISTERED [None]
  - PILOERECTION [None]
  - TACHYCARDIA [None]
  - WITHDRAWAL SYNDROME [None]
